FAERS Safety Report 5084143-8 (Version None)
Quarter: 2006Q3

REPORT INFORMATION
  Report Type: 
  Country: None (occurrence: None)
  Receive Date: 20060816
  Receipt Date: 20060809
  Transmission Date: 20061208
  Serious: Yes (Hospitalization)
  Sender: FDA-Public Use
  Company Number: 2006097070

PATIENT
  Sex: Female

DRUGS (1)
  1. BENADRYL [Suspect]
     Indication: HYPERSENSITIVITY
     Dosage: 2 TABLETS, ORAL
     Route: 048
     Dates: start: 20060809, end: 20060809

REACTIONS (4)
  - CHEST PAIN [None]
  - DYSPNOEA [None]
  - OCULAR HYPERAEMIA [None]
  - PALLOR [None]
